FAERS Safety Report 4991478-3 (Version None)
Quarter: 2006Q2

REPORT INFORMATION
  Report Type: 
  Country: None (occurrence: None)
  Receive Date: 20060502
  Receipt Date: 20060420
  Transmission Date: 20061013
  Serious: Yes (Hospitalization)
  Sender: FDA-Public Use
  Company Number: 200610345BYL

PATIENT
  Age: 67 Year
  Sex: Male

DRUGS (1)
  1. AVELOX [Suspect]
     Indication: OTITIS MEDIA CHRONIC
     Dosage: 400 MG, QD, ORAL
     Route: 048
     Dates: start: 20060113, end: 20060210

REACTIONS (5)
  - EOSINOPHIL COUNT DECREASED [None]
  - HEPATIC FUNCTION ABNORMAL [None]
  - LYMPHOCYTE STIMULATION TEST POSITIVE [None]
  - PNEUMONIA [None]
  - PNEUMONITIS [None]
